FAERS Safety Report 17163007 (Version 2)
Quarter: 2020Q1

REPORT INFORMATION
  Report Type: Spontaneous
  Country: US (occurrence: US)
  Receive Date: 20191217
  Receipt Date: 20200327
  Transmission Date: 20200409
  Serious: Yes (Hospitalization, Other)
  Sender: FDA-Public Use
  Company Number: US-GILEAD-2019-0442874

PATIENT
  Age: 46 Year
  Sex: Male

DRUGS (14)
  1. PREDNISOL [PREDNISOLONE SODIUM PHOSPHATE] [Concomitant]
  2. TRAMADOL. [Concomitant]
     Active Substance: TRAMADOL
  3. LYRICA [Concomitant]
     Active Substance: PREGABALIN
  4. LISINOPRIL. [Concomitant]
     Active Substance: LISINOPRIL
  5. HYDROCORTISONE. [Concomitant]
     Active Substance: HYDROCORTISONE
  6. LEXIVA [Concomitant]
     Active Substance: FOSAMPRENAVIR CALCIUM
  7. EPZICOM [Concomitant]
     Active Substance: ABACAVIR SULFATE\LAMIVUDINE
  8. NEURONTIN [Concomitant]
     Active Substance: GABAPENTIN
  9. POLYTRIM [Concomitant]
     Active Substance: POLYMYXIN B SULFATE\TRIMETHOPRIM SULFATE
  10. NORVIR [Concomitant]
     Active Substance: RITONAVIR
  11. CALCITROL [CALCITRIOL] [Concomitant]
     Active Substance: CALCITRIOL
  12. ERGOCALCIFEROL. [Concomitant]
     Active Substance: ERGOCALCIFEROL
  13. TRUVADA [Suspect]
     Active Substance: EMTRICITABINE\TENOFOVIR DISOPROXIL FUMARATE
     Indication: PRODUCT USED FOR UNKNOWN INDICATION
     Dosage: 1 DOSAGE
     Route: 048
     Dates: start: 200901, end: 20110624
  14. CRESTOR [Concomitant]
     Active Substance: ROSUVASTATIN CALCIUM

REACTIONS (8)
  - Pain [Unknown]
  - Anxiety [Unknown]
  - Fanconi syndrome acquired [Unknown]
  - Chronic kidney disease [Unknown]
  - Anhedonia [Unknown]
  - Emotional distress [Unknown]
  - Acute kidney injury [Unknown]
  - Economic problem [Unknown]

NARRATIVE: CASE EVENT DATE: 20090217
